FAERS Safety Report 13660635 (Version 3)
Quarter: 2017Q4

REPORT INFORMATION
  Report Type: Spontaneous
  Country: GB (occurrence: GB)
  Receive Date: 20170616
  Receipt Date: 20171013
  Transmission Date: 20180320
  Serious: Yes (Death, Hospitalization, Other)
  Sender: FDA-Public Use
  Company Number: GB-009507513-1706GBR006523

PATIENT
  Age: 64 Year
  Sex: Male

DRUGS (8)
  1. DEXAMETHASONE. [Suspect]
     Active Substance: DEXAMETHASONE
     Indication: DYSPNOEA
  2. ATORVASTATIN [Concomitant]
     Active Substance: ATORVASTATIN
  3. RAMIPRIL. [Concomitant]
     Active Substance: RAMIPRIL
  4. AMITRIPTYLINE HYDROCHLORIDE. [Concomitant]
     Active Substance: AMITRIPTYLINE HYDROCHLORIDE
  5. CLOPIDOGREL [Concomitant]
     Active Substance: CLOPIDOGREL BISULFATE
  6. DEXAMETHASONE. [Suspect]
     Active Substance: DEXAMETHASONE
     Indication: CHEST PAIN
     Dosage: 8 MG, TWICE DAILY
     Route: 048
  7. THIAMINE. [Concomitant]
     Active Substance: THIAMINE
  8. VITAMIN B (UNSPECIFIED) [Concomitant]
     Active Substance: VITAMIN B

REACTIONS (4)
  - Acute kidney injury [Unknown]
  - Hepatic function abnormal [Unknown]
  - Multiple organ dysfunction syndrome [Fatal]
  - Tumour lysis syndrome [Unknown]
